FAERS Safety Report 9352663 (Version 2)
Quarter: 2014Q3

REPORT INFORMATION
  Report Type: Report from Study
  Country: CA (occurrence: CA)
  Receive Date: 20130618
  Receipt Date: 20140825
  Transmission Date: 20150326
  Serious: Yes (Hospitalization)
  Sender: FDA-Public Use
  Company Number: CA-ROCHE-1236811

PATIENT
  Age: 54 Year
  Sex: Male
  Weight: 97.5 kg

DRUGS (7)
  1. DIPHENHYDRAMINE HCL [Concomitant]
     Active Substance: DIPHENHYDRAMINE HYDROCHLORIDE
     Route: 048
     Dates: start: 20100914
  2. ACETAMINOPHEN. [Concomitant]
     Active Substance: ACETAMINOPHEN
     Route: 048
     Dates: start: 20100914
  3. METHYLPREDNISOLONE [Concomitant]
     Active Substance: METHYLPREDNISOLONE
     Route: 042
     Dates: start: 20100914
  4. TYLENOL [Concomitant]
     Active Substance: ACETAMINOPHEN
  5. RITUXAN [Suspect]
     Active Substance: RITUXIMAB
     Indication: RHEUMATOID ARTHRITIS
     Dosage: LATEST INFUSION WAS ON 09/SEP/2013.
     Route: 042
     Dates: start: 20100914
  6. TELMISARTAN. [Concomitant]
     Active Substance: TELMISARTAN
  7. ARAVA [Concomitant]
     Active Substance: LEFLUNOMIDE

REACTIONS (8)
  - Arthralgia [Recovering/Resolving]
  - Discomfort [Not Recovered/Not Resolved]
  - Bacterial infection [Unknown]
  - Groin pain [Recovering/Resolving]
  - Weight decreased [Not Recovered/Not Resolved]
  - Immunodeficiency [Not Recovered/Not Resolved]
  - Back pain [Recovered/Resolved]
  - Arthralgia [Not Recovered/Not Resolved]

NARRATIVE: CASE EVENT DATE: 2013
